FAERS Safety Report 7022963-0 (Version None)
Quarter: 2010Q3

REPORT INFORMATION
  Report Type: 
  Country: None (occurrence: None)
  Receive Date: 20100916
  Receipt Date: 20100811
  Transmission Date: 20110219
  Serious: No
  Sender: FDA-Public Use
  Company Number: DKLU1063863 (0)

PATIENT
  Age: 20 Year
  Sex: Male

DRUGS (4)
  1. SABRIL [Suspect]
     Indication: EPILEPSY
     Dosage: 2500 MG MILLIGRAM (S), HS, ORAL, 2000 MG MILLIGRAM (S), HS, ORAL, 3000 MG MILLIGRAM (S), HS, ORAL
     Route: 048
     Dates: start: 20100501
  2. SABRIL [Suspect]
     Indication: EPILEPSY
     Dosage: 2500 MG MILLIGRAM (S), HS, ORAL, 2000 MG MILLIGRAM (S), HS, ORAL, 3000 MG MILLIGRAM (S), HS, ORAL
     Route: 048
     Dates: start: 20100722
  3. TRILEPTAL [Concomitant]
  4. LAMICTAL [Concomitant]

REACTIONS (1)
  - NEUROPATHY PERIPHERAL [None]
